FAERS Safety Report 7974401-9 (Version None)
Quarter: 2011Q4

REPORT INFORMATION
  Report Type: 
  Country: None (occurrence: None)
  Receive Date: 20111213
  Receipt Date: 20111205
  Transmission Date: 20120403
  Serious: Yes (Hospitalization, Disabling, Other)
  Sender: FDA-Public Use
  Company Number: US-BAYER-2011-053843

PATIENT
  Age: 29 Year
  Sex: Female
  Weight: 63.492 kg

DRUGS (3)
  1. DROSPIRENONE AND ETHINYL ESTRADIOL [Suspect]
     Indication: CONTRACEPTION
     Dosage: UNK
     Dates: start: 20090101, end: 20090601
  2. YAZ [Suspect]
     Indication: CONTRACEPTION
     Dosage: UNK
     Dates: start: 20060101, end: 20070101
  3. YASMIN [Suspect]
     Indication: CONTRACEPTION
     Dosage: UNK
     Dates: start: 20060101, end: 20070101

REACTIONS (7)
  - DEEP VEIN THROMBOSIS [None]
  - ANHEDONIA [None]
  - PULMONARY EMBOLISM [None]
  - PAIN [None]
  - ANXIETY [None]
  - INJURY [None]
  - THROMBOSIS [None]
